FAERS Safety Report 23414914 (Version 1)
Quarter: 2024Q1

REPORT INFORMATION
  Report Type: Spontaneous
  Country: FR (occurrence: FR)
  Receive Date: 20240118
  Receipt Date: 20240118
  Transmission Date: 20240410
  Serious: Yes (Other)
  Sender: FDA-Public Use
  Company Number: FR-AFSSAPS-PB2023001560

PATIENT
  Age: 83 Year
  Sex: Female
  Weight: 72 kg

DRUGS (1)
  1. AZITHROMYCIN [Suspect]
     Active Substance: AZITHROMYCIN
     Indication: Pneumonia mycoplasmal
     Dosage: 500 MILLIGRAM
     Route: 048
     Dates: start: 20231108, end: 20231113

REACTIONS (2)
  - Presbyacusis [Recovered/Resolved]
  - Condition aggravated [Recovered/Resolved]

NARRATIVE: CASE EVENT DATE: 20231113
